FAERS Safety Report 4920631-X (Version None)
Quarter: 2006Q1

REPORT INFORMATION
  Report Type: 
  Country: None (occurrence: None)
  Receive Date: 20060223
  Receipt Date: 20060213
  Transmission Date: 20060701
  Serious: Yes (Other)
  Sender: FDA-Public Use
  Company Number: AU-ROCHE-436005

PATIENT
  Age: 30 Year
  Sex: Female

DRUGS (3)
  1. VALIUM [Suspect]
     Indication: DRUG USE FOR UNKNOWN INDICATION
     Route: 065
  2. ZYPREXA [Suspect]
     Indication: DRUG USE FOR UNKNOWN INDICATION
     Route: 065
  3. THIAMINE [Concomitant]

REACTIONS (5)
  - AGGRESSION [None]
  - AKATHISIA [None]
  - DRUG WITHDRAWAL SYNDROME [None]
  - RESTLESSNESS [None]
  - SUICIDAL IDEATION [None]
